FAERS Safety Report 18223044 (Version 1)
Quarter: 2020Q3

REPORT INFORMATION
  Report Type: Spontaneous
  Country: US (occurrence: US)
  Receive Date: 20200902
  Receipt Date: 20200902
  Transmission Date: 20201103
  Serious: Yes (Death)
  Sender: FDA-Public Use
  Company Number: US-AMERICAN REGENT INC-2020001776

PATIENT
  Age: 46 Year
  Sex: Female

DRUGS (4)
  1. LEUCOVORIN CALCIUM INJECTION (0517?8605?25) [Suspect]
     Active Substance: LEUCOVORIN CALCIUM
     Indication: BONE MARROW FAILURE
  2. LEUCOVORIN CALCIUM INJECTION (0517?8605?25) [Suspect]
     Active Substance: LEUCOVORIN CALCIUM
     Indication: PANCYTOPENIA
     Dosage: UNK
     Route: 065
  3. FOLATE [Suspect]
     Active Substance: FOLATE SODIUM
     Indication: PANCYTOPENIA
     Dosage: UNK
     Route: 065
  4. FOLATE [Suspect]
     Active Substance: FOLATE SODIUM
     Indication: BONE MARROW FAILURE

REACTIONS (2)
  - Pancytopenia [Fatal]
  - Drug ineffective [Fatal]
